FAERS Safety Report 10911390 (Version 2)
Quarter: 2015Q1

REPORT INFORMATION
  Report Type: Spontaneous
  Country: GB (occurrence: GB)
  Receive Date: 20150313
  Receipt Date: 20150326
  Transmission Date: 20150721
  Serious: Yes (Death)
  Sender: FDA-Public Use
  Company Number: GB-ACCORD-029183

PATIENT
  Age: 64 Year
  Sex: Male
  Weight: 66 kg

DRUGS (24)
  1. TACROLIMUS. [Suspect]
     Active Substance: TACROLIMUS
     Indication: RENAL TRANSPLANT
     Dosage: 0.5- 1 MG TWICE A DAY, BASED ON LEVELS
     Route: 048
     Dates: start: 19990619, end: 20141222
  2. VALGANCICLOVIR/VALGANCICLOVIR HYDROCHLORIDE [Concomitant]
  3. SALBUTAMOL [Concomitant]
     Active Substance: ALBUTEROL
  4. SPIRONOLACTONE. [Concomitant]
     Active Substance: SPIRONOLACTONE
  5. LEVOTHYROXINE [Concomitant]
     Active Substance: LEVOTHYROXINE
  6. MEROPENEM/MEROPENEM TRIHYDRATE [Concomitant]
  7. AMLODIPINE [Concomitant]
     Active Substance: AMLODIPINE BESYLATE
  8. HYDROCORTISONE. [Concomitant]
     Active Substance: HYDROCORTISONE
  9. SANDOCAL [Concomitant]
  10. SODIUM BICARBONATE. [Concomitant]
     Active Substance: SODIUM BICARBONATE
  11. RAMIPRIL. [Concomitant]
     Active Substance: RAMIPRIL
  12. GLYCERYL TRINITRATE [Concomitant]
     Active Substance: NITROGLYCERIN
  13. ALLOPURINOL. [Concomitant]
     Active Substance: ALLOPURINOL
  14. PREDNISOLONE. [Concomitant]
     Active Substance: PREDNISOLONE
  15. NEBIVOLOL/NEBIVOLOL HYDROCHLORIDE [Concomitant]
  16. SIMVASTATIN. [Concomitant]
     Active Substance: SIMVASTATIN
  17. MYCOPHENOLIC ACID. [Suspect]
     Active Substance: MYCOPHENOLIC ACID
     Indication: RENAL TRANSPLANT
     Dosage: 250-1000 MG TWICE A DAY, VARIED OVER YEARS
     Route: 048
     Dates: start: 19990309, end: 20140111
  18. SENNA [Concomitant]
     Active Substance: SENNA LEAF\SENNOSIDES\SENNOSIDES A AND B
  19. CASPOFUNGIN/CASPOFUNGIN ACETATE [Concomitant]
  20. ASPIRIN. [Concomitant]
     Active Substance: ASPIRIN
  21. ISOTARD XL [Concomitant]
  22. ALFACALCIDOL [Concomitant]
     Active Substance: ALFACALCIDOL
  23. FUROSEMIDE. [Concomitant]
     Active Substance: FUROSEMIDE
  24. COTRIMOXAZOLE [Concomitant]
     Active Substance: SULFAMETHOXAZOLE\TRIMETHOPRIM

REACTIONS (1)
  - Pneumocystis jirovecii pneumonia [Fatal]

NARRATIVE: CASE EVENT DATE: 20141210
